FAERS Safety Report 6404044-X (Version None)
Quarter: 2009Q4

REPORT INFORMATION
  Report Type: 
  Country: None (occurrence: None)
  Receive Date: 20091016
  Receipt Date: 20090722
  Transmission Date: 20100525
  Serious: No
  Sender: FDA-Public Use
  Company Number: US-ALEXION-A200900373

PATIENT
  Sex: Female

DRUGS (3)
  1. SOLIRIS [Suspect]
     Indication: PAROXYSMAL NOCTURNAL HAEMOGLOBINURIA
     Dosage: 600 MG, QW
     Route: 042
     Dates: start: 20090323, end: 20090413
  2. SOLIRIS [Suspect]
     Dosage: 900 MG, Q2WK
     Route: 042
     Dates: start: 20090420
  3. TYLENOL (CAPLET) [Concomitant]
     Indication: HEADACHE
     Dosage: 2 TAB, PRN
     Route: 048
     Dates: start: 20090501

REACTIONS (2)
  - HEADACHE [None]
  - NEUROPATHY PERIPHERAL [None]
